FAERS Safety Report 8795353 (Version 2)
Quarter: 2013Q4

REPORT INFORMATION
  Report Type: Spontaneous
  Country: US (occurrence: US)
  Receive Date: 20120917
  Receipt Date: 20131031
  Transmission Date: 20140711
  Serious: Yes (Hospitalization)
  Sender: FDA-Public Use
  Company Number: US-MERCK-1209USA003474

PATIENT
  Sex: Male

DRUGS (5)
  1. ISENTRESS [Suspect]
     Dosage: 800 MG, UNK
     Route: 048
  2. CELSENTRI [Suspect]
     Dosage: 600 MG, UNK
  3. TRUVADA [Suspect]
     Dosage: 445 MG, UNK
     Route: 048
  4. FLUOXETINE [Concomitant]
     Dosage: UNK
  5. CHAMPION NUTRITION JSF [Concomitant]
     Dosage: UNK

REACTIONS (6)
  - Petit mal epilepsy [Unknown]
  - Myoglobin urine present [Unknown]
  - Myoglobin blood increased [Unknown]
  - Alanine aminotransferase increased [Unknown]
  - Pyrexia [Unknown]
  - Muscle contracture [Unknown]
